FAERS Safety Report 4315115-6 (Version None)
Quarter: 2004Q1

REPORT INFORMATION
  Report Type: 
  Country: None (occurrence: None)
  Receive Date: 20040310
  Receipt Date: 20030912
  Transmission Date: 20041129
  Serious: Yes (Hospitalization)
  Sender: FDA-Public Use
  Company Number: DE-BRISTOL-MYERS SQUIBB COMPANY-12381034

PATIENT
  Age: 24 Year
  Sex: Female

DRUGS (8)
  1. ATAZANAVIR [Suspect]
     Indication: HIV INFECTION
     Route: 048
     Dates: start: 20030821
  2. ISONIAZID [Suspect]
     Indication: TUBERCULOSIS
     Dosage: ISONIAZID + VITAMIN B6
     Dates: start: 20030601, end: 20030910
  3. RIFABUTIN [Suspect]
     Indication: TUBERCULOSIS
     Dates: start: 20030601, end: 20030910
  4. MYAMBUTOL [Suspect]
     Indication: TUBERCULOSIS
     Dates: start: 20030601, end: 20030910
  5. LEVOFLOXACIN [Suspect]
     Dates: start: 20030601, end: 20030910
  6. RITONAVIR [Concomitant]
     Indication: HIV INFECTION
     Dates: start: 20030821
  7. TENOFOVIR [Concomitant]
     Indication: HIV INFECTION
     Dates: start: 20030821
  8. EPIVIR [Concomitant]
     Indication: HIV INFECTION
     Dates: start: 20030821

REACTIONS (4)
  - GENERAL PHYSICAL HEALTH DETERIORATION [None]
  - MENORRHAGIA [None]
  - PANCYTOPENIA [None]
  - PNEUMOCYSTIS CARINII PNEUMONIA [None]
